FAERS Safety Report 8067041-7 (Version None)
Quarter: 2012Q1

REPORT INFORMATION
  Report Type: 
  Country: None (occurrence: None)
  Receive Date: 20120124
  Receipt Date: 20120111
  Transmission Date: 20120608
  Serious: Yes (Hospitalization)
  Sender: FDA-Public Use
  Company Number: US-ACTELION-A-US2011-57993

PATIENT

DRUGS (7)
  1. EPOPROSTENOL SODIUM [Suspect]
     Indication: PULMONARY ARTERIAL HYPERTENSION
     Dosage: 56 NG/KG, PER MIN
     Route: 042
     Dates: start: 20110209
  2. LASIX [Concomitant]
  3. EPOPROSTENOL SODIUM [Suspect]
     Dosage: 42 NG/KG, PER MIN
     Route: 042
     Dates: start: 20110203
  4. TRACLEER [Suspect]
     Dosage: 62.5 MG, BID
     Route: 048
     Dates: start: 20090904, end: 20091003
  5. ADCIRCA [Concomitant]
  6. COUMADIN [Concomitant]
  7. TRACLEER [Suspect]
     Indication: PULMONARY ARTERIAL HYPERTENSION
     Dosage: 125 MG, BID
     Route: 048
     Dates: start: 20091004

REACTIONS (7)
  - PYREXIA [None]
  - DYSPNOEA [None]
  - STAPHYLOCOCCAL INFECTION [None]
  - DEVICE RELATED INFECTION [None]
  - PULMONARY ARTERIAL HYPERTENSION [None]
  - CHEST PAIN [None]
  - CONDITION AGGRAVATED [None]
